FAERS Safety Report 9753177 (Version 2)
Quarter: 2015Q3

REPORT INFORMATION
  Report Type: Spontaneous
  Country: US (occurrence: US)
  Receive Date: 20131213
  Receipt Date: 20150805
  Transmission Date: 20151125
  Serious: No
  Sender: FDA-Public Use
  Company Number: US-GILEAD-2010-0026904

PATIENT
  Age: 89 Year
  Sex: Female
  Weight: 53.52 kg

DRUGS (5)
  1. PROTONIX [Concomitant]
     Active Substance: PANTOPRAZOLE SODIUM
  2. LETAIRIS [Suspect]
     Active Substance: AMBRISENTAN
     Indication: PULMONARY ARTERIAL HYPERTENSION
     Route: 048
  3. COUMADIN [Concomitant]
     Active Substance: WARFARIN SODIUM
  4. LASIX [Concomitant]
     Active Substance: FUROSEMIDE
  5. KLOR-CON [Concomitant]
     Active Substance: POTASSIUM CHLORIDE

REACTIONS (1)
  - Oedema peripheral [Recovering/Resolving]

NARRATIVE: CASE EVENT DATE: 20100127
